FAERS Safety Report 8502069-1 (Version None)
Quarter: 2012Q3

REPORT INFORMATION
  Report Type: 
  Country: None (occurrence: None)
  Receive Date: 20120702
  Receipt Date: 20120614
  Transmission Date: 20120928
  Serious: Yes (Hospitalization)
  Sender: FDA-Public Use
  Company Number: TPA2012A04134

PATIENT
  Age: 75 Year
  Sex: Male
  Weight: 97.977 kg

DRUGS (10)
  1. POTASSIUM CHLORIDE [Concomitant]
  2. CYANOCOBALAMIN [Concomitant]
  3. METOPROLOL TARTRATE [Concomitant]
  4. FUROSEMIDE (FUROSEMIDE) [Concomitant]
  5. METFFORMIN HYDROCHLORIDE [Concomitant]
  6. ASPIRIN [Concomitant]
  7. TERAZOSIN HCL [Concomitant]
  8. ROPINIROLE [Concomitant]
  9. NOVOLIN 70/30 [Concomitant]
  10. ACTOS [Suspect]
     Indication: TYPE 2 DIABETES MELLITUS
     Dosage: 45 MG, 1 IN 1 D, PER ORAL
     Route: 048
     Dates: end: 19970614

REACTIONS (2)
  - PYELONEPHRITIS [None]
  - KIDNEY INFECTION [None]
